FAERS Safety Report 11647904 (Version 2)
Quarter: 2015Q4

REPORT INFORMATION
  Report Type: Spontaneous
  Country: IT (occurrence: IT)
  Receive Date: 20151021
  Receipt Date: 20151021
  Transmission Date: 20160304
  Serious: Yes (Hospitalization, Other)
  Sender: FDA-Public Use
  Company Number: IT-ACTAVIS-2015-22301

PATIENT
  Age: 72 Year
  Sex: Female

DRUGS (3)
  1. CHLORPHENAMINE (UNKNOWN) [Suspect]
     Active Substance: CHLORPHENIRAMINE MALEATE
     Indication: ANGIOEDEMA
     Dosage: 10 MG, UNKNOWN
     Route: 030
  2. HYDROCORTISONE (UNKNOWN) [Suspect]
     Active Substance: HYDROCORTISONE
     Indication: ANGIOEDEMA
     Dosage: 1000 MG, UNKNOWN
     Route: 030
  3. EPINEPHRINE. [Suspect]
     Active Substance: EPINEPHRINE
     Indication: ANGIOEDEMA
     Dosage: 1 FL 1 MG/ML, SOLUTION 1:1000, AEROSOL
     Route: 055

REACTIONS (1)
  - Drug ineffective [Unknown]
